FAERS Safety Report 17169889 (Version 2)
Quarter: 2020Q1

REPORT INFORMATION
  Report Type: Spontaneous
  Country: FR (occurrence: FR)
  Receive Date: 20191218
  Receipt Date: 20200102
  Transmission Date: 20200409
  Serious: Yes (Death, Life-Threatening, Other)
  Sender: FDA-Public Use
  Company Number: FR-BRACCO-2019FR06598

PATIENT
  Age: 45 Year
  Sex: Female
  Weight: 100 kg

DRUGS (5)
  1. CANDESARTAN. [Concomitant]
     Active Substance: CANDESARTAN
  2. LORATADINE. [Concomitant]
     Active Substance: LORATADINE
  3. MANIDIPINE [Concomitant]
     Active Substance: MANIDIPINE
  4. SONOVUE [Suspect]
     Active Substance: SULFUR HEXAFLUORIDE
     Indication: ECHOCARDIOGRAM
     Dosage: 2 ML, SINGLE
     Route: 042
     Dates: start: 20191118, end: 20191118
  5. VENTOLINE                          /00139501/ [Concomitant]
     Active Substance: ALBUTEROL

REACTIONS (2)
  - Anaphylactic shock [Recovered/Resolved]
  - Ventricular tachycardia [Fatal]

NARRATIVE: CASE EVENT DATE: 20191118
